FAERS Safety Report 4683312-6 (Version None)
Quarter: 2005Q2

REPORT INFORMATION
  Report Type: 
  Country: None (occurrence: None)
  Receive Date: 20050602
  Receipt Date: 20050215
  Transmission Date: 20051028
  Serious: No
  Sender: FDA-Public Use
  Company Number: 200510258BWH

PATIENT
  Age: 66 Year
  Sex: Male

DRUGS (7)
  1. LEVITRA [Suspect]
     Indication: ERECTILE DYSFUNCTION
     Dosage: 20 MG, PRN, ORAL
     Route: 048
     Dates: start: 20040801
  2. METFORMIN HCL [Concomitant]
  3. GLIPIZIDE [Concomitant]
  4. NORVASC [Concomitant]
  5. HYDROTHOROCHLOROZIDE [Concomitant]
  6. ASPIRIN [Concomitant]
  7. VITAMINS [Concomitant]

REACTIONS (3)
  - DIZZINESS [None]
  - ERECTILE DYSFUNCTION [None]
  - PARAESTHESIA [None]
